FAERS Safety Report 8267480-5 (Version None)
Quarter: 2012Q2

REPORT INFORMATION
  Report Type: 
  Country: None (occurrence: None)
  Receive Date: 20120409
  Receipt Date: 20120404
  Transmission Date: 20120825
  Serious: Yes (Life-Threatening, Hospitalization)
  Sender: FDA-Public Use
  Company Number: PHHY2012FI029030

PATIENT
  Sex: Male

DRUGS (4)
  1. CLOZAPINE [Suspect]
     Dosage: 200 MG
  2. ABILIFY [Concomitant]
     Dosage: 1 DF/ DAY
  3. TENOX [Concomitant]
     Dosage: 1 DF, PRN
  4. CLOZAPINE [Suspect]
     Indication: SCHIZOPHRENIA
     Dosage: 250 MG (50 MG + 0 MG + 200 MG PER DAY)

REACTIONS (2)
  - ANTIPSYCHOTIC DRUG LEVEL BELOW THERAPEUTIC [None]
  - LOSS OF CONSCIOUSNESS [None]
